FAERS Safety Report 14534999 (Version 4)
Quarter: 2018Q3

REPORT INFORMATION
  Report Type: Spontaneous
  Country: DE (occurrence: DE)
  Receive Date: 20180215
  Receipt Date: 20180813
  Transmission Date: 20181010
  Serious: Yes (Hospitalization)
  Sender: FDA-Public Use
  Company Number: PHHY2017DE201050

PATIENT
  Age: 57 Year
  Sex: Female
  Weight: 48 kg

DRUGS (29)
  1. MCP [Concomitant]
     Active Substance: METOCLOPRAMIDE HYDROCHLORIDE
     Dosage: 10 MG, UNK
     Route: 048
  2. TOREM [Concomitant]
     Active Substance: TORSEMIDE
     Indication: OEDEMA PERIPHERAL
     Dosage: 5 MG, UNK
     Route: 041
     Dates: start: 20180215, end: 201804
  3. SEVREDOL [Concomitant]
     Active Substance: MORPHINE
     Indication: TUMOUR PAIN
     Dosage: 10 MG
     Route: 041
     Dates: start: 20180118, end: 20180118
  4. ABRAXANE [Suspect]
     Active Substance: PACLITAXEL
     Indication: NON-SMALL CELL LUNG CANCER
     Dosage: 100 MG/M2, QD (100 MILLIGRAM/SQ. METER)
     Route: 041
     Dates: start: 20171214
  5. AMITRIPTYLLIN [Concomitant]
     Active Substance: AMITRIPTYLINE HYDROCHLORIDE
     Indication: TUMOUR PAIN
     Dosage: 30 MG, QD
     Route: 048
     Dates: start: 20170920, end: 20171221
  6. IDEOS [Concomitant]
     Active Substance: CALCIUM CARBONATE\CHOLECALCIFEROL
     Indication: PROPHYLAXIS
     Dosage: 1000 MG, UNK
     Route: 058
     Dates: start: 20180322, end: 201804
  7. KEVATRIL [Concomitant]
     Active Substance: GRANISETRON HYDROCHLORIDE
     Dosage: 3 MG, UNK
     Route: 041
  8. PANTOZOL [Concomitant]
     Active Substance: PANTOPRAZOLE SODIUM
     Indication: PROPHYLAXIS
     Dosage: 40 MG, QD
     Route: 048
     Dates: start: 20171207
  9. ETORICOXIB. [Concomitant]
     Active Substance: ETORICOXIB
     Indication: TUMOUR PAIN
     Dosage: 60 MG, QD
     Route: 048
     Dates: start: 20171207
  10. PREGABALIN. [Concomitant]
     Active Substance: PREGABALIN
     Dosage: 450 MG, QD
     Route: 065
     Dates: start: 20170920, end: 201804
  11. CLEXANE [Concomitant]
     Active Substance: ENOXAPARIN SODIUM
     Indication: VENA CAVA THROMBOSIS
     Dosage: 40 MG, UNK
     Route: 058
     Dates: start: 20180322, end: 20180324
  12. MSI [Concomitant]
     Active Substance: MORPHINE SULFATE
     Indication: TUMOUR PAIN
     Dosage: 2 MG, UNK
     Route: 041
  13. UNACID [Concomitant]
     Indication: PNEUMONIA
     Dosage: 9 G, QD
     Route: 041
     Dates: start: 20171221, end: 20171230
  14. MOVICOL [Concomitant]
     Active Substance: POLYETHYLENE GLYCOL 3350\POTASSIUM CHLORIDE\SODIUM BICARBONATE\SODIUM CHLORIDE
     Indication: PROPHYLAXIS
     Dosage: 13.7 MG, QD
     Route: 048
     Dates: start: 20171221
  15. FENTANYL. [Concomitant]
     Active Substance: FENTANYL
     Indication: TUMOUR PAIN
     Dosage: 75 MG, QD
     Route: 062
     Dates: start: 20170920
  16. FENTANYL. [Concomitant]
     Active Substance: FENTANYL
     Dosage: 50 UG, UNK
     Route: 062
  17. FENISTIL [Concomitant]
     Active Substance: DIMETHINDENE
     Indication: PROPHYLAXIS
     Dosage: 4 MG, UNK
     Route: 041
  18. CLEXANE [Concomitant]
     Active Substance: ENOXAPARIN SODIUM
     Dosage: 80 MG, UNK
     Route: 058
     Dates: start: 20180325, end: 20180405
  19. KEVATRIL [Concomitant]
     Active Substance: GRANISETRON HYDROCHLORIDE
     Indication: PROPHYLAXIS
     Dosage: 2 MG, UNK
     Route: 048
  20. PREGABALIN. [Concomitant]
     Active Substance: PREGABALIN
     Indication: TUMOUR PAIN
     Dosage: 50 MG, QD
     Route: 048
     Dates: start: 20170920
  21. NOVALGIN (METAMIZOLE SODIUM) [Concomitant]
     Active Substance: METAMIZOLE SODIUM
     Indication: TUMOUR PAIN
     Dosage: 2000 MG, UNK
     Route: 041
     Dates: start: 20180208, end: 201804
  22. CARBOPLATIN. [Suspect]
     Active Substance: CARBOPLATIN
     Indication: NON-SMALL CELL LUNG CANCER
     Dosage: 6 MG, UNK (6 MG*MIN/ML)
     Route: 041
  23. DECORTIN [Concomitant]
     Active Substance: PREDNISONE
     Indication: PROPHYLAXIS
     Dosage: 100 MG, UNK
     Route: 041
  24. FENTANYL. [Concomitant]
     Active Substance: FENTANYL
     Dosage: 75 MG, QD
     Route: 062
     Dates: start: 201712
  25. RANITIC [Concomitant]
     Active Substance: RANITIDINE HYDROCHLORIDE
     Indication: PROPHYLAXIS
     Dosage: 50 MG, UNK
     Route: 041
  26. FENTANYL. [Concomitant]
     Active Substance: FENTANYL
     Dosage: 25 UG, UNK
     Route: 062
  27. BEN U RON [Concomitant]
     Indication: TUMOUR PAIN
     Dosage: 1500 MG, QD
     Route: 048
     Dates: start: 20171207, end: 20171221
  28. ACC [Concomitant]
     Active Substance: ACETYLCYSTEINE
     Indication: COUGH
     Dosage: 600 MG, UNK
     Route: 041
     Dates: start: 20180315, end: 201804
  29. MCP [Concomitant]
     Active Substance: METOCLOPRAMIDE HYDROCHLORIDE
     Indication: PROPHYLAXIS
     Dosage: 1 ML, UNK
     Route: 048

REACTIONS (7)
  - General physical health deterioration [Recovered/Resolved]
  - Platelet count decreased [Recovered/Resolved]
  - Anaemia [Recovered/Resolved]
  - Nausea [Recovered/Resolved]
  - Pneumonia [Recovered/Resolved]
  - Vomiting [Recovered/Resolved]
  - White blood cell count decreased [Recovered/Resolved]

NARRATIVE: CASE EVENT DATE: 20171220
